FAERS Safety Report 25707306 (Version 1)
Quarter: 2025Q3

REPORT INFORMATION
  Report Type: Spontaneous
  Country: US (occurrence: US)
  Receive Date: 20250820
  Receipt Date: 20250820
  Transmission Date: 20251021
  Serious: Yes (Other)
  Sender: TEVA
  Company Number: US-TEVA-VS-3364417

PATIENT
  Age: 50 Year
  Sex: Female

DRUGS (1)
  1. COPAXONE [Suspect]
     Active Substance: GLATIRAMER ACETATE
     Indication: Product used for unknown indication
     Route: 065

REACTIONS (6)
  - Paralysis [Unknown]
  - Vomiting [Unknown]
  - Hyperhidrosis [Unknown]
  - Feeling hot [Unknown]
  - Feeling abnormal [Unknown]
  - Loss of consciousness [Unknown]
